FAERS Safety Report 8929211 (Version 1)
Quarter: 2012Q4

REPORT INFORMATION
  Report Type: 
  Country: FR (occurrence: FR)
  Receive Date: 20121128
  Receipt Date: 20121128
  Transmission Date: 20130627
  Serious: Yes (Hospitalization, Disabling, Other)
  Sender: FDA-Public Use
  Company Number: FR-ELI_LILLY_AND_COMPANY-FR201211005188

PATIENT
  Age: 77 Year
  Sex: Female

DRUGS (1)
  1. FORSTEO [Suspect]
     Dosage: 20 ug, UNK
     Route: 058
     Dates: start: 2011

REACTIONS (3)
  - Surgery [Unknown]
  - Abasia [Unknown]
  - Joint injury [Unknown]
